FAERS Safety Report 21820021 (Version 1)
Quarter: 2023Q1

REPORT INFORMATION
  Report Type: Report from Study
  Country: PR (occurrence: PR)
  Receive Date: 20230104
  Receipt Date: 20230104
  Transmission Date: 20230417
  Serious: No
  Sender: FDA-Public Use
  Company Number: PR-ABBVIE-22K-131-4521986-00

PATIENT
  Sex: Female
  Weight: 76.203 kg

DRUGS (3)
  1. HUMIRA [Suspect]
     Active Substance: ADALIMUMAB
     Indication: Rheumatoid arthritis
     Route: 058
  2. TOZINAMERAN [Concomitant]
     Active Substance: TOZINAMERAN
     Indication: COVID-19 immunisation
     Dosage: 1ST DOSE
     Route: 030
     Dates: start: 20210807, end: 20210807
  3. TOZINAMERAN [Concomitant]
     Active Substance: TOZINAMERAN
     Indication: COVID-19 immunisation
     Dosage: 2ND DOSE
     Route: 030
     Dates: start: 20210826, end: 20210826

REACTIONS (9)
  - Amnesia [Not Recovered/Not Resolved]
  - Hepatic pain [Unknown]
  - Vitamin D decreased [Unknown]
  - Haematoma [Not Recovered/Not Resolved]
  - Hepatic steatosis [Unknown]
  - Contusion [Unknown]
  - Pain [Recovering/Resolving]
  - Blood cholesterol increased [Unknown]
  - Blood triglycerides increased [Unknown]

NARRATIVE: CASE EVENT DATE: 20220501
